FAERS Safety Report 9422704 (Version 2)
Quarter: 2013Q4

REPORT INFORMATION
  Report Type: Spontaneous
  Country: US (occurrence: None)
  Receive Date: 20130724
  Receipt Date: 20131213
  Transmission Date: 20140711
  Serious: Yes (Other)
  Sender: FDA-Public Use
  Company Number: AXC-2012-000259

PATIENT
  Age: 62 Year
  Sex: Female
  Weight: 43.1 kg

DRUGS (6)
  1. URSO FORTE [Suspect]
     Indication: CHOLESTASIS
     Route: 048
     Dates: start: 201205
  2. ABRAXANE (PACITAXEL ALBUMIN) [Concomitant]
  3. HERCEPTIN (TRASTUZUMAB) [Concomitant]
  4. XELODA (CAPECITABINE) [Concomitant]
  5. CIPRO /00697201/ (CIPROFLOXACIN) [Concomitant]
  6. VALIUM /00017001/ (DIAZEPAM) [Concomitant]

REACTIONS (7)
  - Hepatobiliary infection [None]
  - Device occlusion [None]
  - White blood cell count decreased [None]
  - Red blood cell count decreased [None]
  - Lymphocyte count decreased [None]
  - Blood bilirubin increased [None]
  - Yellow skin [None]
